FAERS Safety Report 24783046 (Version 1)
Quarter: 2024Q4

REPORT INFORMATION
  Report Type: Report from Study
  Country: US (occurrence: US)
  Receive Date: 20241227
  Receipt Date: 20241227
  Transmission Date: 20250115
  Serious: Yes (Hospitalization)
  Sender: RECORDATI
  Company Number: US-RECORDATI RARE DISEASES-2024010011

PATIENT

DRUGS (5)
  1. CARBAGLU [Suspect]
     Active Substance: CARGLUMIC ACID
     Indication: Hyperammonaemic crisis
     Dosage: 600 MG, QD AS NEEDED (200 MG DISSOLVE 3 TABLETS (600 MG) IN 2.5 ML OF WATER PER TABLET AND TAKE ONCE
     Dates: start: 20221004
  2. CARBAGLU [Suspect]
     Active Substance: CARGLUMIC ACID
     Dosage: 1000 MILLIGRAM (5 TABLETS), BID (60 COUNT) (AS NEEDED)
  3. LEVOCARNITINE [Concomitant]
     Active Substance: LEVOCARNITINE
     Indication: Product used for unknown indication
     Dosage: 100MG/ML SOLUTION
  4. FAMOTIDINE [Concomitant]
     Active Substance: FAMOTIDINE
     Indication: Product used for unknown indication
     Dosage: 40MG/5ML SUSP RECON
  5. CLINDAMYCIN [Concomitant]
     Active Substance: CLINDAMYCIN
     Indication: Product used for unknown indication
     Dosage: (PAEDIATRIC) 75 MG/5 ML SOLN RECON

REACTIONS (1)
  - Liver transplant [Recovering/Resolving]
